FAERS Safety Report 25538800 (Version 2)
Quarter: 2025Q3

REPORT INFORMATION
  Report Type: Report from Study
  Country: CA (occurrence: CA)
  Receive Date: 20250710
  Receipt Date: 20250711
  Transmission Date: 20251020
  Serious: Yes (Life-Threatening, Hospitalization, Other)
  Sender: NOVARTIS
  Company Number: CA-002147023-NVSC2025CA098740

PATIENT
  Age: 18 Year
  Sex: Female
  Weight: 51 kg

DRUGS (1)
  1. MEKINIST [Suspect]
     Active Substance: TRAMETINIB DIMETHYL SULFOXIDE
     Indication: Glioma
     Dosage: 2 MG, QD (TABLET)
     Route: 048
     Dates: start: 20250304, end: 20250613

REACTIONS (7)
  - Skin toxicity [Unknown]
  - Rash [Recovering/Resolving]
  - Infected skin ulcer [Unknown]
  - Skin exfoliation [Unknown]
  - Alopecia [Unknown]
  - Paronychia [Unknown]
  - Stomatitis [Unknown]

NARRATIVE: CASE EVENT DATE: 20250523
